FAERS Safety Report 23949131 (Version 1)
Quarter: 2024Q2

REPORT INFORMATION
  Report Type: Report from Study
  Country: US (occurrence: US)
  Receive Date: 20240607
  Receipt Date: 20240607
  Transmission Date: 20240716
  Serious: Yes (Hospitalization)
  Sender: FDA-Public Use
  Company Number: US-GILEAD-2024-0675644

PATIENT
  Sex: Male

DRUGS (3)
  1. AMBRISENTAN [Suspect]
     Active Substance: AMBRISENTAN
     Indication: Pulmonary arterial hypertension
     Dosage: 10 MG
     Route: 065
     Dates: start: 202312
  2. UPTRAVI [Concomitant]
     Active Substance: SELEXIPAG
     Dates: start: 202312
  3. ADCIRCA [Concomitant]
     Active Substance: TADALAFIL
     Dates: start: 202312

REACTIONS (2)
  - Cardiac disorder [Recovered/Resolved]
  - Off label use [Not Recovered/Not Resolved]
